FAERS Safety Report 6838999-6 (Version None)
Quarter: 2010Q3

REPORT INFORMATION
  Report Type: 
  Country: None (occurrence: None)
  Receive Date: 20100713
  Receipt Date: 20100216
  Transmission Date: 20110219
  Serious: No
  Sender: FDA-Public Use
  Company Number: US-PFIZER INC-2007039821

PATIENT
  Sex: Male
  Weight: 86 kg

DRUGS (12)
  1. CHANTIX [Suspect]
     Indication: SMOKING CESSATION THERAPY
     Dosage: 0.5 MG, 1X/DAY
     Route: 048
     Dates: start: 20070505
  2. CHANTIX [Suspect]
     Dosage: UNK
     Dates: start: 20090701, end: 20090901
  3. CHANTIX [Suspect]
     Dosage: UNK
     Dates: start: 20100101
  4. TOPROL-XL [Concomitant]
     Indication: BLOOD PRESSURE ABNORMAL
     Dosage: 100 MG, UNK
  5. TOPROL-XL [Concomitant]
  6. NORVASC [Concomitant]
     Indication: BLOOD PRESSURE ABNORMAL
  7. CLONIDINE [Concomitant]
     Indication: BLOOD PRESSURE ABNORMAL
  8. ADVAIR DISKUS 100/50 [Concomitant]
  9. PREDNISONE [Concomitant]
     Dosage: DAILY AS NEEDED
  10. TYLENOL [Concomitant]
  11. ACETYLSALICYLIC ACID [Concomitant]
  12. VIOXX [Concomitant]

REACTIONS (4)
  - GASTRIC DISORDER [None]
  - IRRITABILITY [None]
  - NERVOUSNESS [None]
  - TREMOR [None]
